FAERS Safety Report 6004528-2 (Version None)
Quarter: 2008Q4

REPORT INFORMATION
  Report Type: 
  Country: None (occurrence: None)
  Receive Date: 20081216
  Receipt Date: 20081204
  Transmission Date: 20090506
  Serious: Yes (Hospitalization)
  Sender: FDA-Public Use
  Company Number: FR-ROCHE-601086

PATIENT
  Sex: Female
  Weight: 58 kg

DRUGS (2)
  1. PEG-INTERFERON ALFA 2A (RO 25-8310) [Suspect]
     Indication: HEPATITIS C
     Dosage: DOSAGE FORM: INJECTABLE SOLUTION
     Route: 058
     Dates: start: 20081013, end: 20081108
  2. RIBAVIRIN [Suspect]
     Indication: HEPATITIS C
     Dosage: DOSING FREQ: QD
     Route: 048
     Dates: start: 20081013, end: 20081108

REACTIONS (7)
  - ANAEMIA [None]
  - ASTHENIA [None]
  - HEADACHE [None]
  - INFLUENZA LIKE ILLNESS [None]
  - METRORRHAGIA [None]
  - NEUTROPENIA [None]
  - THROMBOCYTOPENIA [None]
